FAERS Safety Report 10170379 (Version 5)
Quarter: 2014Q3

REPORT INFORMATION
  Report Type: Spontaneous
  Country: US (occurrence: US)
  Receive Date: 20140513
  Receipt Date: 20140806
  Transmission Date: 20150326
  Serious: Yes (Other)
  Sender: FDA-Public Use
  Company Number: US-TEVA-481108USA

PATIENT
  Age: 61 Year
  Sex: Female

DRUGS (4)
  1. LETROZOLE. [Suspect]
     Active Substance: LETROZOLE
     Indication: NEOPLASM MALIGNANT
     Dates: start: 201310, end: 20140422
  2. ATACAND [Concomitant]
     Active Substance: CANDESARTAN CILEXETIL
     Indication: BLOOD PRESSURE
  3. CALCIUM [Concomitant]
     Active Substance: CALCIUM
  4. VITAMIN D [Concomitant]
     Active Substance: CHOLECALCIFEROL

REACTIONS (30)
  - Insomnia [Unknown]
  - Abdominal pain upper [Unknown]
  - Feeling abnormal [Unknown]
  - Depression [Unknown]
  - Dysgeusia [Unknown]
  - Irritability [Unknown]
  - Crying [Unknown]
  - Drug withdrawal syndrome [Unknown]
  - Mood swings [Unknown]
  - Hypercalcaemia [Unknown]
  - Somnolence [Unknown]
  - Activities of daily living impaired [Unknown]
  - Musculoskeletal pain [Unknown]
  - Emotional disorder [Unknown]
  - Hot flush [Unknown]
  - Pain in extremity [Unknown]
  - Eye pain [Unknown]
  - Confusional state [Unknown]
  - Sleep disorder [Unknown]
  - Pulse pressure increased [Unknown]
  - Feeling of body temperature change [Unknown]
  - Nausea [Unknown]
  - Muscle spasms [Unknown]
  - Fatigue [Unknown]
  - Eye disorder [Unknown]
  - Tinnitus [Unknown]
  - Arthralgia [Unknown]
  - Restlessness [Unknown]
  - Myalgia [Unknown]
  - Anxiety [Unknown]

NARRATIVE: CASE EVENT DATE: 201302
